FAERS Safety Report 8602974-1 (Version None)
Quarter: 2012Q3

REPORT INFORMATION
  Report Type: 
  Country: None (occurrence: None)
  Receive Date: 20120817
  Receipt Date: 20120810
  Transmission Date: 20120928
  Serious: Yes (Other)
  Sender: FDA-Public Use
  Company Number: US-SP-2012-04056

PATIENT
  Sex: Female

DRUGS (2)
  1. ADACEL [Suspect]
     Indication: IMMUNISATION
     Route: 030
     Dates: start: 20120414, end: 20120414
  2. TUBERSOL [Suspect]
     Indication: IMMUNISATION
     Route: 030
     Dates: start: 20120414, end: 20120414

REACTIONS (5)
  - INCORRECT ROUTE OF DRUG ADMINISTRATION [None]
  - NODULE [None]
  - VACCINATION SITE CELLULITIS [None]
  - TENDERNESS [None]
  - VACCINATION SITE INFLAMMATION [None]
